FAERS Safety Report 8256072-X (Version None)
Quarter: 2012Q2

REPORT INFORMATION
  Report Type: 
  Country: None (occurrence: None)
  Receive Date: 20120403
  Receipt Date: 20120329
  Transmission Date: 20120825
  Serious: Yes (Other)
  Sender: FDA-Public Use
  Company Number: JP-PFIZER INC-2012020934

PATIENT
  Age: 73 Year
  Sex: Male
  Weight: 55.5 kg

DRUGS (12)
  1. ADALAT [Suspect]
     Indication: HYPERTENSION
     Dosage: 10 MG, 1X/DAY
     Route: 048
     Dates: end: 20110316
  2. FOIPAN [Concomitant]
     Dosage: 200 MG, 3X/DAY
     Route: 048
  3. CARTEOLOL HYDROCHLORIDE [Suspect]
     Indication: HYPERTENSION
     Dosage: 5 MG, 1X/DAY
     Route: 048
     Dates: end: 20110308
  4. SEROQUEL [Suspect]
     Indication: DEPRESSION
     Dosage: 25 MG, 2X/DAY
     Route: 048
     Dates: end: 20110308
  5. CASODEX [Concomitant]
     Dosage: 80 MG, 1X/DAY
     Route: 048
  6. TANATRIL [Suspect]
     Indication: HYPERTENSION
     Dosage: 5 MG, 2X/DAY
     Route: 048
     Dates: end: 20110316
  7. RABEPRAZOLE SODIUM [Concomitant]
     Dosage: 10 MG, 1X/DAY
     Route: 048
  8. LEVOTHYROXINE SODIUM [Concomitant]
     Dosage: 100 UG, 2X/DAY
     Route: 048
  9. DIAZEPAM [Suspect]
     Indication: DEPRESSION
     Dosage: 4 MG, 2X/DAY
     Route: 048
     Dates: end: 20110308
  10. PROMAC D [Concomitant]
     Dosage: 75 MG, 2X/DAY
     Route: 048
  11. ZOLOFT [Suspect]
     Indication: DEPRESSION
     Dosage: 50 MG, 1X/DAY
     Route: 048
     Dates: end: 20110315
  12. TAMSULOSIN HCL [Suspect]
     Indication: BENIGN PROSTATIC HYPERPLASIA
     Dosage: 0.2 MG, 1X/DAY
     Route: 048
     Dates: end: 20110316

REACTIONS (4)
  - SOMNOLENCE [None]
  - DIZZINESS [None]
  - MEMORY IMPAIRMENT [None]
  - FALL [None]
